FAERS Safety Report 6633040-2 (Version None)
Quarter: 2010Q1

REPORT INFORMATION
  Report Type: 
  Country: None (occurrence: None)
  Receive Date: 20100312
  Receipt Date: 20100301
  Transmission Date: 20100710
  Serious: Yes (Hospitalization)
  Sender: FDA-Public Use
  Company Number: PHEH2010US02344

PATIENT
  Sex: Male

DRUGS (11)
  1. TEKTURNA [Suspect]
     Dosage: 300 MG, UNK
     Route: 048
  2. LOPRESSOR [Suspect]
  3. GLUCOPHAGE [Concomitant]
  4. CRESTOR [Concomitant]
  5. CLONIDINE [Concomitant]
  6. XANAX [Concomitant]
  7. PLAVIX [Concomitant]
  8. VASOTEC [Concomitant]
  9. EFFEXOR XR [Concomitant]
  10. PROTONIX [Concomitant]
  11. ANTIVERT ^PFIZER^ [Concomitant]

REACTIONS (1)
  - TRANSIENT ISCHAEMIC ATTACK [None]
